FAERS Safety Report 19276787 (Version 2)
Quarter: 2021Q3

REPORT INFORMATION
  Report Type: Spontaneous
  Country: US (occurrence: US)
  Receive Date: 20210519
  Receipt Date: 20210810
  Transmission Date: 20211014
  Serious: No
  Sender: FDA-Public Use
  Company Number: US-HORIZON THERAPEUTICS-HZN-2021-000846

PATIENT
  Sex: Female

DRUGS (1)
  1. TEPEZZA [Suspect]
     Active Substance: TEPROTUMUMAB-TRBW
     Indication: ENDOCRINE OPHTHALMOPATHY
     Route: 065

REACTIONS (15)
  - Vitamin D decreased [Unknown]
  - Thyroid stimulating immunoglobulin increased [Unknown]
  - Blood glucose increased [Unknown]
  - Blood thyroid stimulating hormone decreased [Unknown]
  - Blood triglycerides increased [Unknown]
  - Cardioactive drug level decreased [Unknown]
  - Diarrhoea [Unknown]
  - Rash [Unknown]
  - Blood urine present [Unknown]
  - Hepatic enzyme increased [Unknown]
  - Low density lipoprotein increased [Unknown]
  - High density lipoprotein decreased [Unknown]
  - Drug ineffective [Unknown]
  - Nausea [Unknown]
  - Glycosylated haemoglobin increased [Unknown]
